FAERS Safety Report 13290091 (Version 6)
Quarter: 2017Q4

REPORT INFORMATION
  Report Type: Spontaneous
  Country: US (occurrence: US)
  Receive Date: 20170303
  Receipt Date: 20171012
  Transmission Date: 20180320
  Serious: Yes (Other)
  Sender: FDA-Public Use
  Company Number: PHEH2017US006468

PATIENT
  Age: 29 Year
  Sex: Female

DRUGS (3)
  1. ZOFRAN [Suspect]
     Active Substance: ONDANSETRON HYDROCHLORIDE
     Indication: PRODUCT USED FOR UNKNOWN INDICATION
     Route: 048
  2. ZOFRAN [Suspect]
     Active Substance: ONDANSETRON HYDROCHLORIDE
     Indication: VOMITING IN PREGNANCY
     Dosage: 1.56 ML, UNK
     Route: 042
     Dates: start: 20020119
  3. ZOFRAN [Suspect]
     Active Substance: ONDANSETRON HYDROCHLORIDE
     Indication: VOMITING IN PREGNANCY
     Dosage: 8 MG, UNK
     Route: 048
     Dates: start: 20020207, end: 20020301

REACTIONS (22)
  - Musculoskeletal stiffness [Unknown]
  - Musculoskeletal discomfort [Unknown]
  - Premature labour [Unknown]
  - Maternal exposure during pregnancy [Unknown]
  - Emotional distress [Unknown]
  - Normal pressure hydrocephalus [Unknown]
  - Abdominal discomfort [Unknown]
  - Abdominal pain [Unknown]
  - Dyspnoea [Unknown]
  - Product use in unapproved indication [Unknown]
  - Intracranial pressure increased [Unknown]
  - Gastrooesophageal reflux disease [Unknown]
  - Gastroenteritis [Unknown]
  - Headache [Unknown]
  - Pleural effusion [Unknown]
  - Impaired gastric emptying [Unknown]
  - Multiple pregnancy [Unknown]
  - Constipation [Unknown]
  - Polycystic ovaries [Unknown]
  - Injury [Unknown]
  - Idiopathic intracranial hypertension [Unknown]
  - Premature delivery [Unknown]

NARRATIVE: CASE EVENT DATE: 20020718
